FAERS Safety Report 25216131 (Version 1)
Quarter: 2025Q2

REPORT INFORMATION
  Report Type: Spontaneous
  Country: US (occurrence: US)
  Receive Date: 20250418
  Receipt Date: 20250418
  Transmission Date: 20250717
  Serious: Yes (Life-Threatening, Hospitalization, Other)
  Sender: ROCHE
  Company Number: US-ROCHE-10000253296

PATIENT
  Age: 53 Year
  Sex: Female
  Weight: 79.37 kg

DRUGS (7)
  1. HERCEPTIN [Suspect]
     Active Substance: TRASTUZUMAB
     Indication: HER2 positive breast cancer
     Route: 042
  2. NARCAN [Concomitant]
     Active Substance: NALOXONE HYDROCHLORIDE
     Route: 045
  3. LORAZEPAM [Concomitant]
     Active Substance: LORAZEPAM
     Route: 048
  4. BUMETANIDE [Concomitant]
     Active Substance: BUMETANIDE
  5. potassium chloride  ER [Concomitant]
  6. FENTANYL [Concomitant]
     Active Substance: FENTANYL
     Route: 062
  7. OXYCODONE [Concomitant]
     Active Substance: OXYCODONE
     Route: 048

REACTIONS (40)
  - Sepsis [Recovered/Resolved]
  - Cerebral haemorrhage [Recovered/Resolved]
  - Myocardial infarction [Recovered/Resolved]
  - Osteonecrosis [Unknown]
  - Blood glucose decreased [Recovered/Resolved]
  - Hypomagnesaemia [Not Recovered/Not Resolved]
  - Tricuspid valve incompetence [Not Recovered/Not Resolved]
  - Pulmonary hypertension [Unknown]
  - Oedema peripheral [Not Recovered/Not Resolved]
  - Respiratory distress [Unknown]
  - Hypertension [Unknown]
  - Lymphoedema [Unknown]
  - Anxiety disorder [Unknown]
  - Thrombocytopenia [Unknown]
  - Cardiomyopathy [Unknown]
  - Respiratory syncytial virus infection [Unknown]
  - Hypokalaemia [Unknown]
  - Anaemia [Unknown]
  - Cardiac failure congestive [Not Recovered/Not Resolved]
  - Cardiotoxicity [Unknown]
  - Weight fluctuation [Not Recovered/Not Resolved]
  - Weight decreased [Not Recovered/Not Resolved]
  - Dyspnoea [Recovered/Resolved]
  - Pleural effusion [Not Recovered/Not Resolved]
  - Staphylococcus test positive [Unknown]
  - Deep vein thrombosis [Recovered/Resolved]
  - Drug hypersensitivity [Unknown]
  - Neuropathy peripheral [Unknown]
  - Poor venous access [Unknown]
  - Obesity [Recovered/Resolved]
  - Malnutrition [Unknown]
  - Disease susceptibility [Unknown]
  - Pain in extremity [Unknown]
  - Headache [Unknown]
  - Arthralgia [Not Recovered/Not Resolved]
  - Ill-defined disorder [Not Recovered/Not Resolved]
  - Cardiac failure [Unknown]
  - Recurrent cancer [Not Recovered/Not Resolved]
  - Major depression [Recovered/Resolved]
  - Acute left ventricular failure [Not Recovered/Not Resolved]

NARRATIVE: CASE EVENT DATE: 20220101
